FAERS Safety Report 5743867-7 (Version None)
Quarter: 2008Q2

REPORT INFORMATION
  Report Type: 
  Country: None (occurrence: None)
  Receive Date: 20080516
  Receipt Date: 20080506
  Transmission Date: 20081010
  Serious: Yes (Death, Life-Threatening, Hospitalization)
  Sender: FDA-Public Use
  Company Number: ADE2008-0181

PATIENT
  Age: 84 Year
  Sex: Male

DRUGS (1)
  1. SERTRALINE [Suspect]

REACTIONS (4)
  - ERYTHEMA MULTIFORME [None]
  - RENAL IMPAIRMENT [None]
  - RESPIRATORY DISORDER [None]
  - TOXIC EPIDERMAL NECROLYSIS [None]
